FAERS Safety Report 25498654 (Version 1)
Quarter: 2025Q3

REPORT INFORMATION
  Report Type: Report from Study
  Country: GT (occurrence: GT)
  Receive Date: 20250701
  Receipt Date: 20250701
  Transmission Date: 20251020
  Serious: Yes (Hospitalization)
  Sender: NOVARTIS
  Company Number: GT-002147023-NVSC2025GT104284

PATIENT
  Sex: Female

DRUGS (2)
  1. EXFORGE HCT [Suspect]
     Active Substance: AMLODIPINE BESYLATE\HYDROCHLOROTHIAZIDE\VALSARTAN
     Indication: Hypertension
     Dosage: 1 DOSAGE FORM, QD (AMLODIPINE (5 MG), HYDROCHLOROTHIAZIDE (12.5 MG), VALSARTAN (160 MG))
     Route: 048
  2. EXFORGE HCT [Suspect]
     Active Substance: AMLODIPINE BESYLATE\HYDROCHLOROTHIAZIDE\VALSARTAN
     Dosage: 1 DOSAGE FORM, QD DISPERSIBLE TABLET (AMLODIPINE (5 MG), HYDROCHLOROTHIAZIDE (25 MG), VALSARTAN (160
     Route: 048

REACTIONS (7)
  - Drug ineffective [Unknown]
  - Hypertension [Unknown]
  - Pain [Unknown]
  - Headache [Unknown]
  - Neck pain [Unknown]
  - Back disorder [Unknown]
  - Ill-defined disorder [Unknown]
